FAERS Safety Report 12555623 (Version 1)
Quarter: 2016Q3

REPORT INFORMATION
  Report Type: Spontaneous
  Country: US (occurrence: None)
  Receive Date: 20160713
  Receipt Date: 20160713
  Transmission Date: 20161109
  Serious: Yes (Other)
  Sender: FDA-Public Use
  Company Number: None

PATIENT
  Age: 72 Year
  Sex: Male

DRUGS (4)
  1. NEURONTIN [Concomitant]
     Active Substance: GABAPENTIN
  2. TRICOR [Concomitant]
     Active Substance: FENOFIBRATE
  3. AVASTIN [Suspect]
     Active Substance: BEVACIZUMAB
     Indication: NEOVASCULAR AGE-RELATED MACULAR DEGENERATION
     Dosage: 1.25MG/0.05ML SINGLE INJECTION ONCE INTRAVITREAL INJECTION
     Dates: start: 20160411, end: 20160411
  4. ATORVASTATIN [Concomitant]
     Active Substance: ATORVASTATIN

REACTIONS (2)
  - Uveitis [None]
  - Vitreous floaters [None]

NARRATIVE: CASE EVENT DATE: 20160411
